FAERS Safety Report 6797312 (Version 2)
Quarter: 2019Q1

REPORT INFORMATION
  Report Type: Spontaneous
  Country: GB (occurrence: GB)
  Receive Date: 20081027
  Receipt Date: 20190308
  Transmission Date: 20190418
  Serious: Yes (Other)
  Sender: FDA-Public Use
  Company Number: GB-PFIZER INC-2008088536

PATIENT
  Age: 33 Year
  Sex: Female
  Weight: 66 kg

DRUGS (2)
  1. CHAMPIX [Suspect]
     Active Substance: VARENICLINE TARTRATE
     Indication: SMOKING CESSATION THERAPY
     Dosage: 0.5 MG, UNK
     Dates: start: 20080912, end: 20080916
  2. CHAMPIX [Suspect]
     Active Substance: VARENICLINE TARTRATE
     Dosage: 1 MG, 2X/DAY
     Route: 048
     Dates: start: 20080917

REACTIONS (1)
  - Metrorrhagia [Unknown]

NARRATIVE: CASE EVENT DATE: 20080918
